FAERS Safety Report 10666090 (Version 2)
Quarter: 2014Q4

REPORT INFORMATION
  Report Type: Spontaneous
  Country: US (occurrence: US)
  Receive Date: 20141219
  Receipt Date: 20141219
  Transmission Date: 20150529
  Serious: Yes (Hospitalization, Other)
  Sender: FDA-Public Use
  Company Number: US-CELGENE-USA-2014100105

PATIENT
  Age: 62 Year
  Sex: Female

DRUGS (3)
  1. OTEZLA [Suspect]
     Active Substance: APREMILAST
     Indication: PSORIATIC ARTHROPATHY
     Route: 048
     Dates: start: 20140807, end: 2014
  2. OTEZLA [Suspect]
     Active Substance: APREMILAST
     Route: 048
     Dates: start: 2014, end: 20140905
  3. HUMIRA [Suspect]
     Active Substance: ADALIMUMAB
     Indication: PSORIATIC ARTHROPATHY
     Route: 050
     Dates: start: 201310, end: 2014

REACTIONS (12)
  - Pneumonia [Unknown]
  - Mobility decreased [Unknown]
  - Urticaria [Recovered/Resolved]
  - Drug effect incomplete [Unknown]
  - Feeling abnormal [Unknown]
  - Dyspnoea [Unknown]
  - Chills [Unknown]
  - Pruritus [Recovered/Resolved]
  - Stress [Unknown]
  - Chest discomfort [Unknown]
  - Pulmonary embolism [Unknown]
  - Painful respiration [Unknown]

NARRATIVE: CASE EVENT DATE: 2014
